FAERS Safety Report 6307730-5 (Version None)
Quarter: 2009Q3

REPORT INFORMATION
  Report Type: 
  Country: None (occurrence: None)
  Receive Date: 20090811
  Receipt Date: 20090729
  Transmission Date: 20100115
  Serious: Yes (Life-Threatening, Hospitalization)
  Sender: FDA-Public Use
  Company Number: 1-19337415

PATIENT
  Sex: Male

DRUGS (2)
  1. SULFAMETHOXAZOLE TRIMETHOPRIM [Suspect]
     Dosage: INTRAVENOUS
     Route: 042
  2. INSULIN [Suspect]

REACTIONS (3)
  - CARDIAC ARREST [None]
  - HYPOGLYCAEMIA [None]
  - OVERDOSE [None]
